FAERS Safety Report 10280149 (Version 1)
Quarter: 2014Q3

REPORT INFORMATION
  Report Type: Spontaneous
  Country: IL (occurrence: None)
  Receive Date: 20140701
  Receipt Date: 20140701
  Transmission Date: 20150326
  Serious: Yes (Hospitalization, Congenital Anomaly)
  Sender: FDA-Public Use
  Company Number: 2014HINLIT0578

PATIENT

DRUGS (2)
  1. PERPHENAZINE (PERPHENAZINE) [Concomitant]
  2. LITHIUM [Suspect]
     Active Substance: LITHIUM CARBONATE
     Indication: BIPOLAR DISORDER
     Route: 064

REACTIONS (3)
  - Heart disease congenital [None]
  - Pulmonary malformation [None]
  - Maternal drugs affecting foetus [None]
